FAERS Safety Report 22209247 (Version 1)
Quarter: 2023Q2

REPORT INFORMATION
  Report Type: Spontaneous
  Country: JP (occurrence: JP)
  Receive Date: 20230413
  Receipt Date: 20230413
  Transmission Date: 20230722
  Serious: Yes (Death, Other)
  Sender: FDA-Public Use
  Company Number: JP-TAKEDA-2022TJP078851

PATIENT
  Age: 53 Year
  Sex: Male

DRUGS (4)
  1. TEDUGLUTIDE [Suspect]
     Active Substance: TEDUGLUTIDE
     Indication: Congenital megacolon
     Dosage: 1.1 MILLIGRAM, QD
     Route: 058
     Dates: start: 20221107, end: 20221203
  2. TEDUGLUTIDE [Suspect]
     Active Substance: TEDUGLUTIDE
     Indication: Congenital megacolon
     Dosage: 1.1 MILLIGRAM, QD
     Route: 058
     Dates: start: 20221107, end: 20221203
  3. TEDUGLUTIDE [Suspect]
     Active Substance: TEDUGLUTIDE
     Indication: Congenital megacolon
     Dosage: 1.1 MILLIGRAM, QD
     Route: 058
     Dates: start: 20221107, end: 20221203
  4. TEDUGLUTIDE [Suspect]
     Active Substance: TEDUGLUTIDE
     Indication: Congenital megacolon
     Dosage: 1.1 MILLIGRAM, QD
     Route: 058
     Dates: start: 20221107, end: 20221203

REACTIONS (5)
  - Sepsis [Fatal]
  - Device related infection [Fatal]
  - Abdominal discomfort [Recovering/Resolving]
  - Stoma site oedema [Recovering/Resolving]
  - Abdominal pain [Recovering/Resolving]

NARRATIVE: CASE EVENT DATE: 20221203
